FAERS Safety Report 6438350-X (Version None)
Quarter: 2009Q4

REPORT INFORMATION
  Report Type: 
  Country: None (occurrence: None)
  Receive Date: 20091112
  Receipt Date: 20091029
  Transmission Date: 20100525
  Serious: Yes (Other)
  Sender: FDA-Public Use
  Company Number: DE-MYLANLABS-2009S1018976

PATIENT
  Age: 88 Year
  Sex: Female
  Weight: 55 kg

DRUGS (5)
  1. OMEPRAZOLE [Suspect]
     Indication: GASTRITIS EROSIVE
     Dosage: DAILY DOSE: 20 MG MILLGRAM(S) EVERY DAYS
     Route: 048
     Dates: start: 20060101
  2. MIRTAZAPINE [Suspect]
     Indication: DEPRESSION
     Dates: start: 20030101
  3. BISOPROLOL [Concomitant]
     Indication: HYPERTENSION
     Dosage: DAILY DOSE: 2.5 MG MILLGRAM(S) EVERY DAYS
     Dates: start: 20020101
  4. AMLODIPINE [Concomitant]
     Indication: HYPERTENSION
     Dates: start: 20060101
  5. LORAZEPAM [Concomitant]
     Indication: ANXIETY
     Dosage: 0.5
     Dates: start: 20060101

REACTIONS (6)
  - ASTHENIA [None]
  - CONFUSIONAL STATE [None]
  - HYPONATRAEMIA [None]
  - MUSCULAR WEAKNESS [None]
  - NAUSEA [None]
  - VOMITING [None]
